FAERS Safety Report 10038728 (Version 1)
Quarter: 2014Q1

REPORT INFORMATION
  Report Type: Spontaneous
  Country: US (occurrence: None)
  Receive Date: 20140306
  Receipt Date: 20140306
  Transmission Date: 20141002
  Serious: Yes (Other)
  Sender: FDA-Public Use
  Company Number: 163-21880-13072983

PATIENT
  Age: 66 Year
  Sex: Female

DRUGS (5)
  1. REVLIMID (LENALIDOMIDE) (25 MILLIGRAM, CAPSULES) [Suspect]
     Indication: PLASMA CELL MYELOMA
     Dosage: 1 IN 1 D
     Route: 048
     Dates: start: 20121026
  2. SINEQUAN (DOXEPIN HYDROCHLORIDE) [Concomitant]
  3. ZESTRIL (LISINOPRIL) [Concomitant]
  4. REQUIP (ROPINIROLE HYDROCHLORIDE) [Concomitant]
  5. ZOCOR [Concomitant]

REACTIONS (1)
  - Deep vein thrombosis [None]
